FAERS Safety Report 17463292 (Version 1)
Quarter: 2020Q1

REPORT INFORMATION
  Report Type: Spontaneous
  Country: US (occurrence: US)
  Receive Date: 20200213
  Receipt Date: 20200213
  Transmission Date: 20200409
  Serious: Yes (Hospitalization)
  Sender: FDA-Public Use
  Company Number: None

PATIENT
  Age: 93 Year
  Sex: Male
  Weight: 89 kg

DRUGS (2)
  1. APIXABAN (APIXABAN 2.5MG TAB) [Suspect]
     Active Substance: APIXABAN
     Indication: ATRIAL FIBRILLATION
     Route: 048
     Dates: start: 20160630, end: 20190906
  2. ASPIRIN (ASPIRIN 81MG TAB, CHEWABLE) [Suspect]
     Active Substance: ASPIRIN
     Route: 048
     Dates: start: 20160917, end: 20190926

REACTIONS (1)
  - Gastrointestinal haemorrhage [None]

NARRATIVE: CASE EVENT DATE: 20190906
